FAERS Safety Report 5615744-3 (Version None)
Quarter: 2008Q1

REPORT INFORMATION
  Report Type: 
  Country: None (occurrence: None)
  Receive Date: 20080206
  Receipt Date: 20080129
  Transmission Date: 20080703
  Serious: Yes (Other)
  Sender: FDA-Public Use
  Company Number: PHEH2007US12877

PATIENT
  Age: 60 Year
  Sex: Female

DRUGS (4)
  1. KLONOPIN [Concomitant]
     Indication: ANXIETY
     Dosage: 0.5 MG, QHS
     Route: 048
  2. ANTIHYPERTENSIVE DRUGS [Concomitant]
  3. CLOZAPINE [Suspect]
     Indication: SCHIZOPHRENIA
     Dosage: 600 MG, QD
     Route: 048
  4. CLOZARIL [Suspect]
     Indication: SCHIZOPHRENIA
     Dosage: 600 MG, QD
     Route: 048

REACTIONS (6)
  - EXCORIATION [None]
  - HYPERTENSION [None]
  - ROAD TRAFFIC ACCIDENT [None]
  - SKIN CANCER [None]
  - SKIN DISCOLOURATION [None]
  - SKIN NEOPLASM EXCISION [None]
